FAERS Safety Report 24032025 (Version 3)
Quarter: 2024Q3

REPORT INFORMATION
  Report Type: Spontaneous
  Country: MY (occurrence: MY)
  Receive Date: 20240630
  Receipt Date: 20240926
  Transmission Date: 20241017
  Serious: Yes (Other)
  Sender: SANDOZ
  Company Number: MY-002147023-NVSC2024MY133890

PATIENT
  Age: 79 Year
  Sex: Female

DRUGS (4)
  1. MAXITROL [Suspect]
     Active Substance: DEXAMETHASONE\NEOMYCIN SULFATE\POLYMYXIN B SULFATE
     Indication: Prophylaxis
     Dosage: 1 DF, Q8H
     Route: 047
  2. MAXIDEX [Suspect]
     Active Substance: DEXAMETHASONE
     Indication: Eye inflammation
     Dosage: 1 DOSAGE FORM, Q12H
     Route: 047
  3. SIMBRINZA [Suspect]
     Active Substance: BRIMONIDINE TARTRATE\BRINZOLAMIDE
     Indication: Ocular discomfort
     Dosage: 1 DF, Q12H
     Route: 047
  4. VIGAMOX [Suspect]
     Active Substance: MOXIFLOXACIN HYDROCHLORIDE
     Indication: Eye inflammation
     Dosage: 1 DF, Q12H
     Route: 047

REACTIONS (3)
  - Eye discharge [Unknown]
  - Eye swelling [Unknown]
  - Ocular hyperaemia [Unknown]
